FAERS Safety Report 23940986 (Version 1)
Quarter: 2024Q2

REPORT INFORMATION
  Report Type: Spontaneous
  Country: BE (occurrence: BE)
  Receive Date: 20240605
  Receipt Date: 20240605
  Transmission Date: 20240716
  Serious: Yes (Life-Threatening)
  Sender: FDA-Public Use
  Company Number: BE-ORGANON-O2406BEL000144

PATIENT
  Sex: Male

DRUGS (2)
  1. DESLORATADINE\PSEUDOEPHEDRINE [Suspect]
     Active Substance: DESLORATADINE\PSEUDOEPHEDRINE
     Dosage: QD (EVENING)
     Route: 048
     Dates: start: 20240530, end: 20240530
  2. DESLORATADINE\PSEUDOEPHEDRINE [Suspect]
     Active Substance: DESLORATADINE\PSEUDOEPHEDRINE
     Dosage: TWICE A DAY (BID)
     Route: 048
     Dates: start: 20240531, end: 20240601

REACTIONS (3)
  - Loss of consciousness [Not Recovered/Not Resolved]
  - Dizziness [Not Recovered/Not Resolved]
  - Malaise [Not Recovered/Not Resolved]

NARRATIVE: CASE EVENT DATE: 20240601
